FAERS Safety Report 4585802-3 (Version None)
Quarter: 2005Q1

REPORT INFORMATION
  Report Type: 
  Country: None (occurrence: None)
  Receive Date: 20050216
  Receipt Date: 20050208
  Transmission Date: 20050727
  Serious: Yes (Death)
  Sender: FDA-Public Use
  Company Number: 05-01-0059

PATIENT
  Age: 55 Year
  Sex: Female

DRUGS (3)
  1. CLOZAPINE [Suspect]
     Indication: SCHIZOPHRENIA
     Dosage: 300MG QD ORAL
     Route: 048
     Dates: start: 20040201, end: 20041201
  2. LEVAQUIN [Concomitant]
  3. ADVAIR DISKUS 100/50 [Concomitant]

REACTIONS (1)
  - RESPIRATORY FAILURE [None]
